FAERS Safety Report 15263662 (Version 1)
Quarter: 2018Q3

REPORT INFORMATION
  Report Type: Spontaneous
  Country: DE (occurrence: DE)
  Receive Date: 20180810
  Receipt Date: 20180810
  Transmission Date: 20181010
  Serious: No
  Sender: FDA-Public Use
  Company Number: DE-ALKEM LABORATORIES LIMITED-DE-ALKEM-2018-01498

PATIENT
  Age: 46 Year
  Sex: Male

DRUGS (4)
  1. QUETIAPINE. [Concomitant]
     Active Substance: QUETIAPINE
     Indication: BIPOLAR I DISORDER
     Dosage: 50 MG, QD
     Route: 065
  2. LAMOTRIGINE. [Suspect]
     Active Substance: LAMOTRIGINE
     Dosage: 50 MG, QD
     Route: 065
  3. LAMOTRIGINE. [Suspect]
     Active Substance: LAMOTRIGINE
     Indication: BIPOLAR I DISORDER
     Dosage: 25 MG, QD
     Route: 065
  4. QUETIAPINE. [Concomitant]
     Active Substance: QUETIAPINE
     Dosage: 300 MG, QD GRADUALLY INCREASED
     Route: 065

REACTIONS (1)
  - Rash [Unknown]
